FAERS Safety Report 7525354-9 (Version None)
Quarter: 2011Q2

REPORT INFORMATION
  Report Type: 
  Country: None (occurrence: None)
  Receive Date: 20110602
  Receipt Date: 20110602
  Transmission Date: 20111010
  Serious: Yes (Life-Threatening, Hospitalization)
  Sender: FDA-Public Use
  Company Number: None

PATIENT
  Sex: Male
  Weight: 46.2669 kg

DRUGS (2)
  1. EPI PEN DEVI [Suspect]
     Indication: ANAPHYLACTIC REACTION
     Dosage: 0.3MG AUTO-INJECTOR
     Dates: start: 20110214
  2. EPI PEN DEVI [Suspect]
     Indication: ANAPHYLACTIC REACTION
     Dosage: 0.3MG AUTO-INJECTOR
     Dates: start: 20110213

REACTIONS (1)
  - NO THERAPEUTIC RESPONSE [None]
